FAERS Safety Report 24707262 (Version 1)
Quarter: 2024Q4

REPORT INFORMATION
  Report Type: Spontaneous
  Country: CN (occurrence: CN)
  Receive Date: 20241206
  Receipt Date: 20241206
  Transmission Date: 20250115
  Serious: Yes (Other)
  Sender: BAXTER
  Company Number: None

PATIENT
  Age: 40 Year
  Sex: Female

DRUGS (2)
  1. CYCLOPHOSPHAMIDE [Suspect]
     Active Substance: CYCLOPHOSPHAMIDE
     Indication: Cardiac disorder
     Dosage: 0.2 G, ONE TIME IN ONE DAY, DILUTED WITH 50 ML SODIUM CHLORIDE
     Route: 041
     Dates: start: 20241108, end: 20241108
  2. SODIUM CHLORIDE [Suspect]
     Active Substance: SODIUM CHLORIDE
     Indication: Medication dilution
     Dosage: 50 ML, ONE TIME IN ONE DAY, USED TO DILUTE 0.2 G OF CYCLOPHOSPHAMIDE
     Route: 041
     Dates: start: 20241108, end: 20241108

REACTIONS (3)
  - Hepatic function abnormal [Recovering/Resolving]
  - Abdominal discomfort [Recovering/Resolving]
  - Nausea [Unknown]

NARRATIVE: CASE EVENT DATE: 20241108
